FAERS Safety Report 9819230 (Version 1)
Quarter: 2014Q1

REPORT INFORMATION
  Report Type: Spontaneous
  Country: CA (occurrence: CA)
  Receive Date: 20140115
  Receipt Date: 20140115
  Transmission Date: 20141002
  Serious: Yes (Other)
  Sender: FDA-Public Use
  Company Number: CA-009507513-1401CAN005515

PATIENT
  Age: 92 Year
  Sex: Female

DRUGS (6)
  1. FOSAMAX [Suspect]
     Dosage: 1 DF, 1 EVERY 1 WEEKS
     Route: 048
  2. CALCIUM (UNSPECIFIED) [Concomitant]
     Route: 065
  3. CENTRUM SELECT 50 PLUS [Concomitant]
     Route: 065
  4. FOLIC ACID [Concomitant]
     Route: 065
  5. VITALUX (ASCORBIC ACID (+) BETA CAROTENE (+) COPPER (UNSPECIFIED) (+) [Concomitant]
     Route: 065
  6. CYANOCOBALAMIN [Concomitant]
     Route: 065

REACTIONS (1)
  - Tooth fracture [Not Recovered/Not Resolved]
